FAERS Safety Report 18009569 (Version 3)
Quarter: 2021Q2

REPORT INFORMATION
  Report Type: Spontaneous
  Country: US (occurrence: US)
  Receive Date: 20200710
  Receipt Date: 20210622
  Transmission Date: 20210717
  Serious: Yes (Other)
  Sender: FDA-Public Use
  Company Number: US-GILEAD-2020-0480309

PATIENT
  Age: 48 Year
  Sex: Male
  Weight: 99.77 kg

DRUGS (23)
  1. TRUVADA [Suspect]
     Active Substance: EMTRICITABINE\TENOFOVIR DISOPROXIL FUMARATE
     Indication: HIV INFECTION
     Dosage: UNK
     Route: 048
     Dates: start: 200505, end: 201305
  2. ATRIPLA [Suspect]
     Active Substance: EFAVIRENZ\EMTRICITABINE\TENOFOVIR DISOPROXIL FUMARATE
     Indication: HIV INFECTION
     Dosage: UNK
     Route: 065
  3. BIKTARVY [Concomitant]
     Active Substance: BICTEGRAVIR SODIUM\EMTRICITABINE\TENOFOVIR ALAFENAMIDE FUMARATE
  4. ACETAMINOPHEN. [Concomitant]
     Active Substance: ACETAMINOPHEN
  5. ALLOPURINOL. [Concomitant]
     Active Substance: ALLOPURINOL
  6. ATORVASTATIN [Concomitant]
     Active Substance: ATORVASTATIN
  7. LASIX [Concomitant]
     Active Substance: FUROSEMIDE
  8. PRAVASTATIN. [Concomitant]
     Active Substance: PRAVASTATIN
  9. TETRACYCLINE [Concomitant]
     Active Substance: TETRACYCLINE
  10. KALETRA [Concomitant]
     Active Substance: LOPINAVIR\RITONAVIR
  11. PENICILLIN NOS [Concomitant]
     Active Substance: PENICILLIN
  12. EMTRIVA [Concomitant]
     Active Substance: EMTRICITABINE
  13. ASPIRIN (E.C.) [Concomitant]
     Active Substance: ASPIRIN
  14. AMOXICILLIN. [Concomitant]
     Active Substance: AMOXICILLIN
  15. CRESTOR [Concomitant]
     Active Substance: ROSUVASTATIN CALCIUM
  16. FLEET LAXATIVE [Concomitant]
  17. SUSTIVA [Concomitant]
     Active Substance: EFAVIRENZ
  18. CORTISONE [Concomitant]
     Active Substance: CORTISONE
  19. FLOMAX [Concomitant]
     Active Substance: TAMSULOSIN HYDROCHLORIDE
  20. RANITIDINE. [Concomitant]
     Active Substance: RANITIDINE
  21. VIREAD [Suspect]
     Active Substance: TENOFOVIR DISOPROXIL FUMARATE
     Indication: HIV INFECTION
     Dosage: UNK
     Route: 048
     Dates: start: 2007, end: 2015
  22. ISENTRESS [Concomitant]
     Active Substance: RALTEGRAVIR POTASSIUM
  23. AMPICILLIN [Concomitant]
     Active Substance: AMPICILLIN

REACTIONS (10)
  - Bone density decreased [Unknown]
  - Anxiety [Unknown]
  - Fanconi syndrome acquired [Not Recovered/Not Resolved]
  - Skeletal injury [Unknown]
  - Pain [Unknown]
  - Chronic kidney disease [Unknown]
  - Renal failure [Unknown]
  - Agoraphobia [Not Recovered/Not Resolved]
  - Depression [Unknown]
  - Emotional distress [Unknown]

NARRATIVE: CASE EVENT DATE: 20130505
